FAERS Safety Report 5611327-X (Version None)
Quarter: 2008Q1

REPORT INFORMATION
  Report Type: 
  Country: None (occurrence: None)
  Receive Date: 20080201
  Receipt Date: 20080123
  Transmission Date: 20080703
  Serious: Yes (Other)
  Sender: FDA-Public Use
  Company Number: BR-WYE-H02171008

PATIENT
  Sex: Female
  Weight: 3.58 kg

DRUGS (4)
  1. TRIQUILAR [Suspect]
     Indication: CONTRACEPTION
     Dosage: PREGNACY EXPOSURE UNTIL THIRD MONTH OF PREGNANCY
     Route: 064
     Dates: end: 20060701
  2. RANITIDINE [Concomitant]
     Dosage: NOT PROVIDED
     Route: 048
     Dates: start: 20071101
  3. MOTILIUM [Concomitant]
     Dosage: NOT PROVIDED
     Route: 048
     Dates: start: 20071101
  4. AMBROXOL [Concomitant]
     Dosage: NOT PROVIDED
     Route: 048
     Dates: start: 20071101

REACTIONS (5)
  - BRONCHOPNEUMONIA [None]
  - CYSTIC FIBROSIS [None]
  - DRUG EXPOSURE DURING PREGNANCY [None]
  - GASTROOESOPHAGEAL REFLUX DISEASE [None]
  - PNEUMONIA [None]
